FAERS Safety Report 4744414-9 (Version None)
Quarter: 2005Q3

REPORT INFORMATION
  Report Type: 
  Country: None (occurrence: None)
  Receive Date: 20050811
  Receipt Date: 20050811
  Transmission Date: 20060218
  Serious: No
  Sender: FDA-Public Use
  Company Number: None

PATIENT
  Age: 56 Year
  Sex: Male

DRUGS (3)
  1. FLUDARABINE PHOSPHATE [Suspect]
  2. RITUXIMAB [Suspect]
  3. PENTOSTATIN [Suspect]

REACTIONS (1)
  - FEBRILE NEUTROPENIA [None]
